FAERS Safety Report 7519133-6 (Version None)
Quarter: 2011Q2

REPORT INFORMATION
  Report Type: 
  Country: None (occurrence: None)
  Receive Date: 20110602
  Receipt Date: 20110531
  Transmission Date: 20111010
  Serious: Yes (Death)
  Sender: FDA-Public Use
  Company Number: PHHY2011US46026

PATIENT
  Sex: Female

DRUGS (1)
  1. MYFORTIC [Suspect]
     Indication: RENAL TRANSPLANT
     Dosage: 360 MG, BID
     Route: 048
     Dates: start: 20071210, end: 20110503

REACTIONS (1)
  - DEATH [None]
